FAERS Safety Report 21115196 (Version 1)
Quarter: 2022Q3

REPORT INFORMATION
  Report Type: Spontaneous
  Country: US (occurrence: US)
  Receive Date: 20220721
  Receipt Date: 20220721
  Transmission Date: 20221027
  Serious: No
  Sender: FDA-Public Use
  Company Number: US-009507513-2206USA007137

PATIENT
  Age: 80 Year
  Sex: Female

DRUGS (2)
  1. STROMECTOL [Suspect]
     Active Substance: IVERMECTIN
     Indication: Strongyloidiasis
     Dosage: DAILY
     Route: 048
  2. INVANZ [Suspect]
     Active Substance: ERTAPENEM SODIUM
     Indication: Klebsiella infection
     Dosage: 1 GRAM, DAILY

REACTIONS (1)
  - Product use in unapproved indication [Unknown]
